FAERS Safety Report 8570352-X (Version None)
Quarter: 2012Q3

REPORT INFORMATION
  Report Type: 
  Country: None (occurrence: None)
  Receive Date: 20120803
  Receipt Date: 20120723
  Transmission Date: 20120928
  Serious: Yes (Hospitalization, Other)
  Sender: FDA-Public Use
  Company Number: US-ELI_LILLY_AND_COMPANY-US201207006894

PATIENT
  Sex: Female
  Weight: 94.331 kg

DRUGS (6)
  1. BYDUREON [Suspect]
     Indication: TYPE 2 DIABETES MELLITUS
     Dosage: 2 MG, WEEKLY (1/W)
     Route: 058
     Dates: start: 20120704, end: 20120718
  2. GABAPENTIN [Concomitant]
     Indication: DIABETIC NEUROPATHY
     Dosage: 1200 MG, UNK
     Route: 048
  3. MIRAPEX [Concomitant]
     Indication: PARKINSON'S DISEASE
     Dosage: 0.5 MG, BID
     Route: 048
  4. GLIPIZIDE [Concomitant]
     Indication: TYPE 2 DIABETES MELLITUS
     Dosage: 5 MG, BID
     Route: 048
  5. CARBIDOPA AND LEVODOPA [Concomitant]
     Indication: PARKINSON'S DISEASE
     Dosage: 1 DF, BID
  6. METFORMIN HYDROCHLORIDE [Concomitant]
     Indication: TYPE 2 DIABETES MELLITUS
     Dosage: 1000 MG, BID
     Route: 048

REACTIONS (8)
  - DISSOCIATION [None]
  - PARKINSON'S DISEASE [None]
  - CHEST PAIN [None]
  - TREMOR [None]
  - COLD SWEAT [None]
  - FEELING ABNORMAL [None]
  - ACTIVITIES OF DAILY LIVING IMPAIRED [None]
  - PRESYNCOPE [None]
